FAERS Safety Report 7771530-X (Version None)
Quarter: 2011Q3

REPORT INFORMATION
  Report Type: 
  Country: None (occurrence: None)
  Receive Date: 20110922
  Receipt Date: 20110318
  Transmission Date: 20111222
  Serious: No
  Sender: FDA-Public Use
  Company Number: US-ASTRAZENECA-2007UW05105

PATIENT
  Age: 16555 Day
  Sex: Female
  Weight: 89.4 kg

DRUGS (16)
  1. SEROQUEL [Suspect]
     Route: 048
     Dates: start: 20060123
  2. RISPERDAL [Concomitant]
     Dates: start: 20020403
  3. PAXIL [Concomitant]
     Dates: start: 19970101, end: 20040101
  4. LORAZEPAM [Concomitant]
     Dates: start: 19990101, end: 20040101
  5. CYMBALTA [Concomitant]
     Dates: start: 20050101, end: 20080101
  6. SEROQUEL [Suspect]
     Indication: DEPRESSION
     Route: 048
     Dates: start: 20050901, end: 20060515
  7. SEROQUEL [Suspect]
     Route: 048
     Dates: start: 20060123
  8. ALPRAZOLAM [Concomitant]
     Dates: start: 20050101
  9. SIMVASTATIN [Concomitant]
     Indication: HYPERLIPIDAEMIA
  10. TRAZODONE HYDROCHLORIDE [Concomitant]
     Dates: start: 19970101, end: 20020101
  11. WELLBUTRIN SR [Concomitant]
     Dates: start: 19990101
  12. DEPAKOTE [Concomitant]
     Dates: start: 19970101
  13. SIMVASTATIN [Concomitant]
     Indication: BLOOD CHOLESTEROL INCREASED
  14. PROZAC [Concomitant]
     Dates: start: 19950101
  15. SEROQUEL [Suspect]
     Indication: SLEEP DISORDER
     Route: 048
     Dates: start: 20050901, end: 20060515
  16. DOXEPIN [Concomitant]
     Dates: start: 19960101, end: 20050101

REACTIONS (5)
  - BLOOD CHOLESTEROL INCREASED [None]
  - BLOOD TRIGLYCERIDES INCREASED [None]
  - FUNCTIONAL GASTROINTESTINAL DISORDER [None]
  - HYPERLIPIDAEMIA [None]
  - TYPE 2 DIABETES MELLITUS [None]
